FAERS Safety Report 14252988 (Version 7)
Quarter: 2020Q3

REPORT INFORMATION
  Report Type: Spontaneous
  Country: US (occurrence: US)
  Receive Date: 20171205
  Receipt Date: 20200914
  Transmission Date: 20201102
  Serious: Yes (Other)
  Sender: FDA-Public Use
  Company Number: US-BRISTOL-MYERS SQUIBB COMPANY-BMS-2017-108872

PATIENT
  Sex: Female
  Weight: 102 kg

DRUGS (1)
  1. ORENCIA [Suspect]
     Active Substance: ABATACEPT
     Indication: PSORIATIC ARTHROPATHY
     Dosage: 125 MG, QWK
     Route: 058
     Dates: start: 201710

REACTIONS (11)
  - Kidney infection [Unknown]
  - Dermatitis [Unknown]
  - Alopecia [Unknown]
  - Nephrolithiasis [Unknown]
  - Foreign body sensation in eyes [Unknown]
  - Infection [Unknown]
  - Intentional product use issue [Unknown]
  - Psoriatic arthropathy [Unknown]
  - Eye inflammation [Unknown]
  - Influenza [Unknown]
  - Malaise [Unknown]
